FAERS Safety Report 14419439 (Version 1)
Quarter: 2018Q1

REPORT INFORMATION
  Report Type: Spontaneous
  Country: BR (occurrence: BR)
  Receive Date: 20180122
  Receipt Date: 20180122
  Transmission Date: 20180509
  Serious: Yes (Other)
  Sender: FDA-Public Use
  Company Number: BR-ELI_LILLY_AND_COMPANY-BR201712005039

PATIENT
  Age: 38 Year
  Sex: Female

DRUGS (1)
  1. HUMALOG [Suspect]
     Active Substance: INSULIN LISPRO
     Indication: DIABETES MELLITUS
     Dosage: UNK, UNKNOWN
     Route: 050

REACTIONS (6)
  - Mental impairment [Unknown]
  - Diabetic complication [Unknown]
  - Diabetic nephropathy [Unknown]
  - Cerebrovascular accident [Unknown]
  - Motor dysfunction [Unknown]
  - Speech disorder [Unknown]

NARRATIVE: CASE EVENT DATE: 2016
